FAERS Safety Report 13416422 (Version 2)
Quarter: 2017Q3

REPORT INFORMATION
  Report Type: Spontaneous
  Country: None (occurrence: DK)
  Receive Date: 20170406
  Receipt Date: 20170713
  Transmission Date: 20171127
  Serious: Yes (Disabling)
  Sender: FDA-Public Use
  Company Number: DK-MERZ NORTH AMERICA, INC.-17MRZ-00118

PATIENT
  Sex: Male

DRUGS (1)
  1. ASCLERA [Suspect]
     Active Substance: POLIDOCANOL
     Indication: VARICOSE VEIN
     Route: 042
     Dates: start: 20160315

REACTIONS (6)
  - Pancreatic failure [Unknown]
  - Weight decreased [Recovering/Resolving]
  - Rash [Unknown]
  - Pancreatitis [Unknown]
  - Bowel movement irregularity [Unknown]
  - Hypersensitivity [Unknown]

NARRATIVE: CASE EVENT DATE: 2016
